FAERS Safety Report 18313834 (Version 3)
Quarter: 2023Q4

REPORT INFORMATION
  Report Type: Spontaneous
  Country: JP (occurrence: JP)
  Receive Date: 20200925
  Receipt Date: 20231127
  Transmission Date: 20240109
  Serious: Yes (Hospitalization)
  Sender: FDA-Public Use
  Company Number: JP-SANOFI-2020SA259959

PATIENT
  Age: 9 Month
  Sex: Male
  Weight: 7.6 kg

DRUGS (4)
  1. SABRIL [Suspect]
     Active Substance: VIGABATRIN
     Indication: Infantile spasms
     Dosage: 250 MG, BID (75 MG/KG/DAY)
     Route: 048
     Dates: start: 20200203, end: 20200206
  2. SABRIL [Suspect]
     Active Substance: VIGABATRIN
     Dosage: 160 MG, BID
     Route: 048
     Dates: start: 20200127, end: 20200202
  3. SABRIL [Suspect]
     Active Substance: VIGABATRIN
     Dosage: 150 MG, BID
     Route: 048
     Dates: start: 20200207, end: 20200210
  4. SABRIL [Suspect]
     Active Substance: VIGABATRIN
     Dosage: UNK
     Route: 048

REACTIONS (1)
  - Respiratory disorder [Recovered/Resolved]

NARRATIVE: CASE EVENT DATE: 20200206
